FAERS Safety Report 17278784 (Version 1)
Quarter: 2020Q1

REPORT INFORMATION
  Report Type: Spontaneous
  Country: IT (occurrence: IT)
  Receive Date: 20200116
  Receipt Date: 20200116
  Transmission Date: 20200409
  Serious: Yes (Other)
  Sender: FDA-Public Use
  Company Number: IT-MYLANLABS-2020M1005030

PATIENT
  Age: 35 Year
  Sex: Female

DRUGS (1)
  1. FEVARIN [Suspect]
     Active Substance: FLUVOXAMINE MALEATE
     Indication: MAJOR DEPRESSION
     Dosage: 75 MILLIGRAM, QD
     Route: 048

REACTIONS (2)
  - Galactorrhoea [Recovering/Resolving]
  - Hyperprolactinaemia [Recovering/Resolving]

NARRATIVE: CASE EVENT DATE: 20190904
